FAERS Safety Report 15320263 (Version 1)
Quarter: 2018Q3

REPORT INFORMATION
  Report Type: Spontaneous
  Country: JP (occurrence: JP)
  Receive Date: 20180827
  Receipt Date: 20180827
  Transmission Date: 20181010
  Serious: Yes (Life-Threatening, Hospitalization, Other)
  Sender: FDA-Public Use
  Company Number: JP-BAYER-2018-122341

PATIENT
  Age: 77 Year
  Sex: Male
  Weight: 68 kg

DRUGS (7)
  1. AROTINOLOL [Concomitant]
     Active Substance: AROTINOLOL
     Indication: HYPERTENSION
     Dosage: DAILY DOSE 10 MG
     Route: 048
  2. LENDORMIN [Concomitant]
     Active Substance: BROTIZOLAM
     Indication: INSOMNIA
     Dosage: STARTED MORE THAN 10 YEARS AGO
     Route: 048
  3. LOXONIN [Suspect]
     Active Substance: LOXOPROFEN SODIUM
     Indication: URETEROLITHIASIS
     Dosage: DAILY DOSE 180 MG
     Route: 048
     Dates: start: 20180610, end: 20180612
  4. BAYASPIRIN 100 MG [Suspect]
     Active Substance: ASPIRIN
     Indication: ANGINA PECTORIS
     Dosage: DAILY DOSE 100 MG
     Route: 048
     Dates: end: 20180622
  5. CALSLOT [Concomitant]
     Active Substance: MANIDIPINE HYDROCHLORIDE
     Indication: HYPERTENSION
     Dosage: ADMINISTERED MORE THAN 10 YEARS AGO
     Route: 048
  6. VOLTAREN SUPPOSITORIES [Suspect]
     Active Substance: DICLOFENAC
     Indication: URETEROLITHIASIS
     Dosage: UNK
     Route: 054
     Dates: start: 20180611, end: 20180613
  7. LIPITOR [Concomitant]
     Active Substance: ATORVASTATIN CALCIUM
     Indication: HYPERLIPIDAEMIA
     Dosage: STARTED MORE THAN 10 YEARS AGO
     Route: 048

REACTIONS (12)
  - Cardiac arrest [None]
  - Melaena [Recovered/Resolved]
  - Pyrexia [Recovered/Resolved]
  - Shock haemorrhagic [None]
  - Haemorrhagic diathesis [None]
  - Ureterolithiasis [Recovered/Resolved]
  - Chest pain [Unknown]
  - Duodenal ulcer haemorrhage [Recovered/Resolved]
  - Tachycardia [Unknown]
  - Duodenal ulcer [None]
  - Acute myocardial infarction [Unknown]
  - Back pain [Recovered/Resolved]

NARRATIVE: CASE EVENT DATE: 20180610
